FAERS Safety Report 8086790-8 (Version None)
Quarter: 2012Q1

REPORT INFORMATION
  Report Type: 
  Country: None (occurrence: None)
  Receive Date: 20120128
  Receipt Date: 20110517
  Transmission Date: 20120608
  Serious: No
  Sender: FDA-Public Use
  Company Number: US-ABBOTT-11P-163-0726826-00

PATIENT
  Sex: Female
  Weight: 90.8 kg

DRUGS (4)
  1. INSULIN [Concomitant]
     Indication: DIABETES MELLITUS
     Dosage: PER IMPLANTED PUMP
  2. AZO YEAST [Concomitant]
     Indication: FUNGAL INFECTION
     Dosage: TWICE DAILY AS REQUIRED
     Route: 048
     Dates: start: 20100101
  3. HUMIRA [Suspect]
     Indication: PSORIATIC ARTHROPATHY
     Route: 058
     Dates: start: 20110427
  4. ARMODAFINIL [Concomitant]
     Indication: FUNGAL INFECTION
     Route: 048
     Dates: start: 20100101

REACTIONS (1)
  - FUNGAL INFECTION [None]
